FAERS Safety Report 5076808-9 (Version None)
Quarter: 2006Q3

REPORT INFORMATION
  Report Type: 
  Country: None (occurrence: None)
  Receive Date: 20060807
  Receipt Date: 20060725
  Transmission Date: 20061208
  Serious: Yes (Death)
  Sender: FDA-Public Use
  Company Number: L06-TUR-03074-07

PATIENT
  Age: 63 Year
  Sex: Female

DRUGS (1)
  1. CARBAMAZEPINE [Suspect]
     Indication: BRAIN OPERATION

REACTIONS (16)
  - BLOOD CREATINE INCREASED [None]
  - BLOOD CREATINE PHOSPHOKINASE INCREASED [None]
  - BLOOD UREA INCREASED [None]
  - CARDIAC DISORDER [None]
  - DRUG HYPERSENSITIVITY [None]
  - ENCEPHALOPATHY [None]
  - GENERAL PHYSICAL HEALTH DETERIORATION [None]
  - HAEMODIALYSIS [None]
  - HERPES VIRUS INFECTION [None]
  - LIVER DISORDER [None]
  - LIVER FUNCTION TEST ABNORMAL [None]
  - MULTI-ORGAN FAILURE [None]
  - NUCLEAR MAGNETIC RESONANCE IMAGING BRAIN NORMAL [None]
  - RENAL DISORDER [None]
  - THYROID DISORDER [None]
  - THYROID FUNCTION TEST ABNORMAL [None]
